FAERS Safety Report 7945571-3 (Version None)
Quarter: 2011Q4

REPORT INFORMATION
  Report Type: 
  Country: None (occurrence: None)
  Receive Date: 20111129
  Receipt Date: 20111123
  Transmission Date: 20120403
  Serious: Yes (Hospitalization)
  Sender: FDA-Public Use
  Company Number: US-AMGEN-USACT2011025118

PATIENT
  Age: 71 Year
  Sex: Male
  Weight: 108.84 kg

DRUGS (25)
  1. GLUCOPHAGE [Concomitant]
     Dosage: UNK UNK, BID
     Route: 048
  2. GLYBURIDE [Concomitant]
     Dosage: 5 MG, QD
     Route: 048
  3. LIPITOR [Concomitant]
     Dosage: 40 MG, QD
     Route: 048
  4. COREG [Concomitant]
     Dosage: 25 MG, BID
     Route: 048
  5. FLOMAX [Concomitant]
     Dosage: 0.4 MG, QD
     Route: 048
  6. NIASPAN [Concomitant]
     Dosage: 50 MG, QD
     Route: 048
  7. IRON [Concomitant]
     Dosage: 325 MG, QD
  8. COUMADIN [Concomitant]
     Dosage: 1 MG, QD
     Route: 048
  9. PLAVIX [Concomitant]
     Dosage: 75 MG, QD
     Route: 048
  10. MAGNESIUM OXIDE [Concomitant]
  11. PRANDIL [Concomitant]
     Dosage: 1 MG, UNK
     Route: 048
  12. KLOR-CON [Concomitant]
     Dosage: 3 MEQ, UNK
     Route: 048
  13. LOVAZA [Concomitant]
     Dosage: 2 MG, BID
     Route: 048
  14. ACETAMINOPHEN [Concomitant]
  15. ZINC [Concomitant]
  16. ATACAND [Concomitant]
     Dosage: 15 MG, QD
     Route: 048
  17. VITAMIN E [Concomitant]
  18. BLINDED DARBEPOETIN ALFA [Suspect]
     Indication: CARDIAC FAILURE
     Dosage: UNK
     Dates: start: 20081229
  19. LASIX [Concomitant]
     Dosage: 80 MG, QD
     Route: 048
  20. AMIODARONE HCL [Concomitant]
     Dosage: 300 MG, QD
     Route: 048
  21. AVODART [Concomitant]
     Dosage: 0.5 MG, QD
     Route: 048
  22. SAW PALMETTO [Concomitant]
  23. FOLIC ACID [Concomitant]
     Dosage: 400 MUG, QD
     Route: 048
  24. BLINDED PLACEBO [Suspect]
     Indication: CARDIAC FAILURE
     Dosage: UNK
     Dates: start: 20081229
  25. MULTI-VITAMINS [Concomitant]

REACTIONS (1)
  - EJECTION FRACTION DECREASED [None]
